FAERS Safety Report 4437945-2 (Version None)
Quarter: 2004Q3

REPORT INFORMATION
  Report Type: 
  Country: None (occurrence: None)
  Receive Date: 20040831
  Receipt Date: 20040827
  Transmission Date: 20050211
  Serious: Yes (Other)
  Sender: FDA-Public Use
  Company Number: US-GLAXOSMITHKLINE-A0523752A

PATIENT
  Sex: Male

DRUGS (4)
  1. AVODART [Suspect]
     Indication: ILL-DEFINED DISORDER
     Route: 048
     Dates: end: 20040801
  2. LISINOPRIL [Concomitant]
  3. METOPROLOL [Concomitant]
  4. FLOMAX [Concomitant]

REACTIONS (1)
  - BLINDNESS [None]
